FAERS Safety Report 25113384 (Version 1)
Quarter: 2025Q1

REPORT INFORMATION
  Report Type: Report from Study
  Country: US (occurrence: US)
  Receive Date: 20250324
  Receipt Date: 20250324
  Transmission Date: 20250408
  Serious: Yes (Other)
  Sender: ALEXION PHARMACEUTICALS
  Company Number: US-AstraZeneca-CH-00830424A

PATIENT

DRUGS (3)
  1. CAPIVASERTIB [Suspect]
     Active Substance: CAPIVASERTIB
     Indication: Lung carcinoma cell type unspecified stage 0
     Dosage: 400 MILLIGRAM, BID
  2. IMODIUM [Concomitant]
     Active Substance: LOPERAMIDE HYDROCHLORIDE
     Route: 065
  3. OREGANO [Concomitant]
     Active Substance: OREGANO
     Route: 065

REACTIONS (3)
  - Axillary mass [Unknown]
  - Diarrhoea [Unknown]
  - Nasopharyngitis [Unknown]
